FAERS Safety Report 4673409-9 (Version None)
Quarter: 2005Q2

REPORT INFORMATION
  Report Type: 
  Country: None (occurrence: None)
  Receive Date: 20050523
  Receipt Date: 20050511
  Transmission Date: 20051028
  Serious: Yes (Hospitalization)
  Sender: FDA-Public Use
  Company Number: 95-07-8023

PATIENT
  Age: 64 Year
  Sex: Male

DRUGS (2)
  1. INTRON A [Suspect]
     Indication: CHRONIC MYELOID LEUKAEMIA
     Dosage: 5 MU SUBCUTANEOUS
     Route: 058
     Dates: start: 19950501
  2. HEPARIN [Concomitant]

REACTIONS (6)
  - ARTHRITIS BACTERIAL [None]
  - ARTHROPATHY [None]
  - ASEPTIC NECROSIS BONE [None]
  - DIFFICULTY IN WALKING [None]
  - PAIN IN EXTREMITY [None]
  - STAPHYLOCOCCAL INFECTION [None]
